FAERS Safety Report 5369922-1 (Version None)
Quarter: 2007Q2

REPORT INFORMATION
  Report Type: 
  Country: None (occurrence: None)
  Receive Date: 20070621
  Receipt Date: 20070605
  Transmission Date: 20071010
  Serious: Yes (Death, Other)
  Sender: FDA-Public Use
  Company Number: 157212ISR

PATIENT
  Age: 75 Year
  Sex: Female

DRUGS (2)
  1. PREDNISOLONE [Suspect]
  2. NICORANDIL [Suspect]
     Dosage: 60 MG (30 MG, 2 IN 1 D)

REACTIONS (6)
  - ANAL ULCER [None]
  - ANASTOMOTIC ULCER [None]
  - APHTHOUS STOMATITIS [None]
  - FISTULA [None]
  - REFUSAL OF TREATMENT BY PATIENT [None]
  - SMALL INTESTINAL PERFORATION [None]
